FAERS Safety Report 19995341 (Version 2)
Quarter: 2022Q2

REPORT INFORMATION
  Report Type: Report from Study
  Country: US (occurrence: US)
  Receive Date: 20211025
  Receipt Date: 20220502
  Transmission Date: 20220721
  Serious: Yes (Hospitalization, Other)
  Sender: FDA-Public Use
  Company Number: US-TAKEDA-US201925468

PATIENT
  Age: 70 Year
  Sex: Female

DRUGS (2)
  1. HUMAN IMMUNOGLOBULIN G [Suspect]
     Active Substance: HUMAN IMMUNOGLOBULIN G
     Indication: Primary immunodeficiency syndrome
     Dosage: UNK
     Route: 065
  2. HUMAN IMMUNOGLOBULIN G [Suspect]
     Active Substance: HUMAN IMMUNOGLOBULIN G
     Indication: Selective IgG subclass deficiency

REACTIONS (5)
  - Cerebrovascular accident [Unknown]
  - Sinus disorder [Unknown]
  - Feeling abnormal [Unknown]
  - Infusion site pain [Unknown]
  - Fatigue [Unknown]

NARRATIVE: CASE EVENT DATE: 20220427
